FAERS Safety Report 4278534-2 (Version None)
Quarter: 2004Q1

REPORT INFORMATION
  Report Type: 
  Country: None (occurrence: None)
  Receive Date: 20040122
  Receipt Date: 20040108
  Transmission Date: 20041129
  Serious: Yes (Death)
  Sender: FDA-Public Use
  Company Number: WAES 0401USA00634

PATIENT
  Age: 76 Year
  Sex: Male

DRUGS (5)
  1. COZAAR [Suspect]
     Indication: HYPERTENSION
     Dosage: 50 MG/DAILY
     Route: 048
     Dates: start: 20011126, end: 20030114
  2. ETIZOLAM [Concomitant]
  3. LIMAPROST [Concomitant]
  4. LOXOPROFEN SODIUM [Concomitant]
  5. TEPRENONE [Concomitant]

REACTIONS (1)
  - DEATH [None]
